FAERS Safety Report 13858601 (Version 1)
Quarter: 2017Q3

REPORT INFORMATION
  Report Type: Spontaneous
  Country: FR (occurrence: FR)
  Receive Date: 20170811
  Receipt Date: 20170811
  Transmission Date: 20171127
  Serious: Yes (Other)
  Sender: FDA-Public Use
  Company Number: FR-BRISTOL-MYERS SQUIBB COMPANY-BMS-2017-057634

PATIENT
  Age: 35 Year
  Sex: Male
  Weight: 80 kg

DRUGS (1)
  1. ELIQUIS [Suspect]
     Active Substance: APIXABAN
     Indication: DEEP VEIN THROMBOSIS
     Dosage: 10 MG, BID
     Route: 048
     Dates: start: 20170615, end: 20170623

REACTIONS (7)
  - Haematuria [Recovered/Resolved]
  - Blood bilirubin increased [Unknown]
  - Blood urine present [Unknown]
  - Haematochezia [Recovered/Resolved]
  - Thrombosis [Unknown]
  - Faeces discoloured [Unknown]
  - Liver disorder [Unknown]

NARRATIVE: CASE EVENT DATE: 20170621
